FAERS Safety Report 4631465-8 (Version None)
Quarter: 2005Q2

REPORT INFORMATION
  Report Type: 
  Country: None (occurrence: None)
  Receive Date: 20050407
  Receipt Date: 20050329
  Transmission Date: 20051028
  Serious: Yes (Death)
  Sender: FDA-Public Use
  Company Number: GBWYE554304APR05

PATIENT
  Sex: Female

DRUGS (1)
  1. EFFEXOR XR [Suspect]
     Dosage: 150 MG

REACTIONS (2)
  - DRUG EXPOSURE DURING PREGNANCY [None]
  - SUDDEN INFANT DEATH SYNDROME [None]
